APPROVED DRUG PRODUCT: OMEPRAZOLE MAGNESIUM
Active Ingredient: OMEPRAZOLE MAGNESIUM
Strength: EQ 20MG BASE
Dosage Form/Route: TABLET, DELAYED RELEASE;ORAL
Application: A211732 | Product #001
Applicant: HETERO LABS LTD UNIT III
Approved: Mar 25, 2020 | RLD: No | RS: No | Type: OTC